FAERS Safety Report 15030539 (Version 1)
Quarter: 2018Q2

REPORT INFORMATION
  Report Type: Spontaneous
  Country: US (occurrence: US)
  Receive Date: 20180619
  Receipt Date: 20180619
  Transmission Date: 20180711
  Serious: No
  Sender: FDA-Public Use
  Company Number: US-GALDERMA-US18006463

PATIENT
  Age: 11 Year
  Sex: Female

DRUGS (1)
  1. DIFFERIN GEL [Suspect]
     Active Substance: ADAPALENE
     Indication: ACNE
     Dosage: 0.1%
     Route: 061
     Dates: start: 201803, end: 20180329

REACTIONS (5)
  - Dry skin [Recovered/Resolved]
  - Skin hypopigmentation [Recovered/Resolved]
  - Skin exfoliation [Recovered/Resolved]
  - Drug administered to patient of inappropriate age [Recovered/Resolved]
  - Skin hyperpigmentation [Recovered/Resolved]

NARRATIVE: CASE EVENT DATE: 201803
